FAERS Safety Report 6997674-8 (Version None)
Quarter: 2010Q3

REPORT INFORMATION
  Report Type: 
  Country: None (occurrence: None)
  Receive Date: 20100918
  Receipt Date: 20091109
  Transmission Date: 20110219
  Serious: No
  Sender: FDA-Public Use
  Company Number: US-WYE-H12092209

PATIENT
  Sex: Male

DRUGS (2)
  1. PRISTIQ [Suspect]
     Indication: DEPRESSION
     Dosage: UNKNOWN
  2. VICODIN [Concomitant]

REACTIONS (2)
  - CONDITION AGGRAVATED [None]
  - DEPRESSION [None]
